FAERS Safety Report 6518611-6 (Version None)
Quarter: 2009Q4

REPORT INFORMATION
  Report Type: 
  Country: None (occurrence: None)
  Receive Date: 20091228
  Receipt Date: 20091218
  Transmission Date: 20100525
  Serious: No
  Sender: FDA-Public Use
  Company Number: CA-JNJFOC-20091205783

PATIENT
  Sex: Male
  Weight: 46.72 kg

DRUGS (19)
  1. USTEKINUMAB [Suspect]
     Route: 058
  2. USTEKINUMAB [Suspect]
     Route: 058
  3. USTEKINUMAB [Suspect]
     Indication: PSORIASIS
     Route: 058
  4. TYLENOL W/ CODEINE NO. 2 [Concomitant]
     Route: 048
  5. DOCUSATE SODIUM [Concomitant]
     Route: 048
  6. TRIAZOLAM [Concomitant]
     Route: 048
  7. PLAVIX [Concomitant]
     Route: 048
  8. METOPROLOL TARTRATE [Concomitant]
     Route: 048
  9. LIPITOR [Concomitant]
     Route: 048
  10. LOSEC [Concomitant]
     Route: 048
  11. COZAAR [Concomitant]
     Route: 048
  12. ALPRAZOLAM [Concomitant]
     Route: 048
  13. ADVAIR DISKUS 100/50 [Concomitant]
     Route: 055
  14. MELOXICAM [Concomitant]
     Route: 048
  15. LEVOCARB [Concomitant]
     Route: 048
  16. NORVASC [Concomitant]
     Route: 048
  17. ALTACE [Concomitant]
     Route: 048
  18. NITRO-DUR [Concomitant]
     Route: 062
  19. LEVAQUIN [Concomitant]
     Route: 048

REACTIONS (1)
  - BASAL CELL CARCINOMA [None]
